FAERS Safety Report 10277091 (Version 3)
Quarter: 2014Q3

REPORT INFORMATION
  Report Type: Spontaneous
  Country: CH (occurrence: None)
  Receive Date: 20140701
  Receipt Date: 20140909
  Transmission Date: 20150326
  Serious: Yes (Other)
  Sender: FDA-Public Use
  Company Number: 20140357

PATIENT
  Age: 49 Year
  Sex: Male
  Weight: 100 kg

DRUGS (5)
  1. FERINJECT [Suspect]
     Active Substance: FERRIC CARBOXYMALTOSE
     Indication: HAEMORRHOIDS
     Dosage: 500 MG (5 IN 5 TOTAL) INTRAVENOUS
     Route: 042
     Dates: start: 20130408, end: 20130414
  2. FERINJECT [Suspect]
     Active Substance: FERRIC CARBOXYMALTOSE
     Indication: IRON DEFICIENCY ANAEMIA
     Route: 041
     Dates: start: 20130813
  3. FERRO SANDOL DUOD (FERROUS GLYCINE SULFATE) [Concomitant]
  4. FERINJECT [Suspect]
     Active Substance: FERRIC CARBOXYMALTOSE
     Indication: IRON DEFICIENCY ANAEMIA
     Dosage: 500 MG (5 IN 5 TOTAL) INTRAVENOUS
     Route: 042
     Dates: start: 20130408, end: 20130414
  5. FERINJECT [Suspect]
     Active Substance: FERRIC CARBOXYMALTOSE
     Indication: HAEMORRHOIDS
     Route: 041
     Dates: start: 20130813

REACTIONS (10)
  - Haemoglobin decreased [None]
  - Liver injury [None]
  - Tracheobronchitis [None]
  - Haemochromatosis [None]
  - Hepatic cirrhosis [None]
  - Hepatic enzyme increased [None]
  - Alcohol abuse [None]
  - Overdose [None]
  - Fatigue [None]
  - Asthenia [None]

NARRATIVE: CASE EVENT DATE: 2013
